FAERS Safety Report 25028646 (Version 2)
Quarter: 2025Q1

REPORT INFORMATION
  Report Type: Spontaneous
  Country: US (occurrence: US)
  Receive Date: 20250302
  Receipt Date: 20250324
  Transmission Date: 20250409
  Serious: No
  Sender: AMGEN
  Company Number: US-AMGEN-USASP2025038131

PATIENT
  Age: 20 Year
  Sex: Female

DRUGS (2)
  1. AVSOLA [Suspect]
     Active Substance: INFLIXIMAB-AXXQ
     Indication: Retinal vasculitis
     Route: 065
  2. ACCUTANE [Concomitant]
     Active Substance: ISOTRETINOIN

REACTIONS (3)
  - Adverse drug reaction [Unknown]
  - Acute phase reaction [Unknown]
  - Off label use [Unknown]

NARRATIVE: CASE EVENT DATE: 20241219
